FAERS Safety Report 4664364-6 (Version None)
Quarter: 2005Q2

REPORT INFORMATION
  Report Type: 
  Country: None (occurrence: None)
  Receive Date: 20050518
  Receipt Date: 20050207
  Transmission Date: 20051028
  Serious: Yes (Hospitalization)
  Sender: FDA-Public Use
  Company Number: DE-ABBOTT-05P-062-0290056-00

PATIENT
  Age: 64 Year
  Sex: Female

DRUGS (6)
  1. HUMIRA 40 MG/ 0.8 ML PRE-FILLED SYRINGE [Suspect]
     Indication: RHEUMATOID ARTHRITIS
     Route: 058
     Dates: start: 20040401, end: 20041013
  2. PREDNISOLONE [Concomitant]
     Indication: DRUG USE FOR UNKNOWN INDICATION
     Dates: end: 20040801
  3. VOLTAREN [Concomitant]
     Indication: RHEUMATOID ARTHRITIS
  4. TILIDIN [Concomitant]
     Indication: RHEUMATOID ARTHRITIS
  5. VALORON RET. 50 [Concomitant]
     Indication: RHEUMATOID ARTHRITIS
  6. PARENTERAL FERRUM [Concomitant]
     Indication: ANAEMIA

REACTIONS (9)
  - ARTHRITIS BACTERIAL [None]
  - DYSAESTHESIA [None]
  - ECZEMA [None]
  - ENTEROCOCCAL INFECTION [None]
  - ESCHERICHIA VAGINITIS [None]
  - FAILURE OF IMPLANT [None]
  - FISTULA [None]
  - IMPLANT SITE INFECTION [None]
  - STAPHYLOCOCCAL INFECTION [None]
